FAERS Safety Report 7347006-0 (Version None)
Quarter: 2011Q1

REPORT INFORMATION
  Report Type: 
  Country: None (occurrence: None)
  Receive Date: 20110311
  Receipt Date: 20110228
  Transmission Date: 20110831
  Serious: Yes (Other)
  Sender: FDA-Public Use
  Company Number: PHHY2010AU89334

PATIENT
  Sex: Female

DRUGS (3)
  1. CLOZARIL [Suspect]
     Dosage: UNK
     Dates: end: 20101125
  2. CLOZARIL [Suspect]
     Dosage: 50 MG, UNK
     Dates: end: 20101222
  3. CLOZARIL [Suspect]
     Dosage: UNK
     Dates: start: 19970912, end: 20101222

REACTIONS (2)
  - RENAL IMPAIRMENT [None]
  - HYPOTENSION [None]
